FAERS Safety Report 12613573 (Version 1)
Quarter: 2016Q3

REPORT INFORMATION
  Report Type: Spontaneous
  Country: US (occurrence: None)
  Receive Date: 20160801
  Receipt Date: 20160801
  Transmission Date: 20161109
  Serious: Yes (Disabling)
  Sender: FDA-Public Use
  Company Number: None

PATIENT
  Age: 26 Year
  Sex: Female
  Weight: 54.43 kg

DRUGS (6)
  1. RIZATRIPTAN. [Concomitant]
     Active Substance: RIZATRIPTAN
  2. MULTIVITAMIN GUMMIES [Concomitant]
  3. CIPRO [Suspect]
     Active Substance: CIPROFLOXACIN HYDROCHLORIDE
     Indication: URINARY TRACT INFECTION
     Route: 048
     Dates: start: 20150608, end: 20150615
  4. YAZ [Concomitant]
     Active Substance: DROSPIRENONE\ETHINYL ESTRADIOL
  5. MAGNESIUM [Concomitant]
     Active Substance: MAGNESIUM
  6. VITAMIN C [Concomitant]
     Active Substance: ASCORBIC ACID

REACTIONS (13)
  - Tendon pain [None]
  - Paraesthesia [None]
  - Abnormal dreams [None]
  - Loss of consciousness [None]
  - Hypoaesthesia [None]
  - Vision blurred [None]
  - Neuropathy peripheral [None]
  - Fatigue [None]
  - Night sweats [None]
  - Anxiety [None]
  - Myalgia [None]
  - Nausea [None]
  - Disorientation [None]

NARRATIVE: CASE EVENT DATE: 20150608
